FAERS Safety Report 5331687-7 (Version None)
Quarter: 2007Q2

REPORT INFORMATION
  Report Type: 
  Country: None (occurrence: None)
  Receive Date: 20070522
  Receipt Date: 20070501
  Transmission Date: 20071010
  Serious: Yes (Other)
  Sender: FDA-Public Use
  Company Number: US-MERCK-0705USA00431

PATIENT
  Age: 68 Year
  Sex: Female

DRUGS (3)
  1. ZETIA [Suspect]
     Indication: BLOOD CHOLESTEROL
     Route: 048
  2. ZETIA [Suspect]
     Route: 048
     Dates: start: 20070201, end: 20070430
  3. [THERAPY UNSPECIFIED] [Concomitant]
     Route: 065

REACTIONS (6)
  - ABDOMINAL PAIN UPPER [None]
  - BACK PAIN [None]
  - CARDIAC DISORDER [None]
  - DIZZINESS [None]
  - JOINT INSTABILITY [None]
  - METRORRHAGIA [None]
